FAERS Safety Report 4390396-1 (Version None)
Quarter: 2004Q2

REPORT INFORMATION
  Report Type: 
  Country: None (occurrence: None)
  Receive Date: 20040630
  Receipt Date: 20040614
  Transmission Date: 20050107
  Serious: Yes (Hospitalization, Other)
  Sender: FDA-Public Use
  Company Number: 166462

PATIENT
  Age: 50 Year
  Sex: Female
  Weight: 73.4827 kg

DRUGS (6)
  1. AVONEX [Suspect]
     Indication: MULTIPLE SCLEROSIS
     Dosage: 30 MCG QW; IM
     Route: 030
     Dates: start: 19970101
  2. ZANAFLEX [Concomitant]
  3. LOSARTAN POTASSIUM [Concomitant]
  4. GLIPIZIDE [Concomitant]
  5. VICODIN [Concomitant]
  6. ... [Concomitant]

REACTIONS (10)
  - APPENDICITIS [None]
  - BACK PAIN [None]
  - BREAST CANCER [None]
  - DIABETES MELLITUS [None]
  - HYPERTENSION [None]
  - INCISION SITE ABSCESS [None]
  - INSOMNIA [None]
  - MEMORY IMPAIRMENT [None]
  - MUSCLE SPASMS [None]
  - POST PROCEDURAL COMPLICATION [None]
